FAERS Safety Report 11170768 (Version 1)
Quarter: 2015Q2

REPORT INFORMATION
  Report Type: Spontaneous
  Country: US (occurrence: None)
  Receive Date: 20150515
  Receipt Date: 20150515
  Transmission Date: 20150821
  Serious: Yes (Hospitalization)
  Sender: FDA-Public Use
  Company Number: 111095

PATIENT
  Age: 58 Year
  Sex: Female

DRUGS (6)
  1. MVI (VITAMINS NOS) [Concomitant]
  2. TRIAMTERENE-HCTZ (HYDROCHLOROTHIAZIDE;TRIAMTERENE) [Concomitant]
  3. PREDNISONE. [Concomitant]
     Active Substance: PREDNISONE
  4. BONIVA [Concomitant]
     Active Substance: IBANDRONATE SODIUM
  5. VITAMIN D (COLECALCIFEROL) [Concomitant]
  6. CIMZIA [Suspect]
     Active Substance: CERTOLIZUMAB PEGOL
     Indication: CROHN^S DISEASE
     Dates: start: 20110819, end: 201312

REACTIONS (1)
  - Lymph gland infection [None]

NARRATIVE: CASE EVENT DATE: 20131218
